FAERS Safety Report 15258711 (Version 2)
Quarter: 2018Q3

REPORT INFORMATION
  Report Type: Spontaneous
  Country: GB (occurrence: GB)
  Receive Date: 20180809
  Receipt Date: 20180927
  Transmission Date: 20181010
  Serious: Yes (Other)
  Sender: FDA-Public Use
  Company Number: GB-009507513-1808GBR003441

PATIENT
  Age: 34 Year
  Sex: Female

DRUGS (1)
  1. PEMBROLIZUMAB. [Suspect]
     Active Substance: PEMBROLIZUMAB
     Indication: MALIGNANT MELANOMA STAGE IV
     Dosage: 105 MG, Q3W
     Route: 042
     Dates: start: 201607, end: 201710

REACTIONS (5)
  - Vitiligo [Recovering/Resolving]
  - Morphoea [Recovering/Resolving]
  - Hypothyroidism [Not Recovered/Not Resolved]
  - Scleroderma-like reaction [Recovering/Resolving]
  - Immune-mediated adverse reaction [Not Recovered/Not Resolved]

NARRATIVE: CASE EVENT DATE: 201710
